FAERS Safety Report 16353849 (Version 1)
Quarter: 2019Q2

REPORT INFORMATION
  Report Type: Spontaneous
  Country: ES (occurrence: ES)
  Receive Date: 20190524
  Receipt Date: 20190524
  Transmission Date: 20190711
  Serious: Yes (Other)
  Sender: FDA-Public Use
  Company Number: ES-JNJFOC-20190218740

PATIENT
  Age: 43 Year
  Sex: Female
  Weight: 65 kg

DRUGS (1)
  1. STELARA [Suspect]
     Active Substance: USTEKINUMAB
     Indication: PSORIASIS
     Route: 058
     Dates: start: 20180709

REACTIONS (4)
  - Rash [Recovered/Resolved]
  - Puncture site oedema [Recovering/Resolving]
  - Injection site erythema [Recovering/Resolving]
  - Inflammation [Recovered/Resolved]

NARRATIVE: CASE EVENT DATE: 20190121
